FAERS Safety Report 15282067 (Version 1)
Quarter: 2018Q3

REPORT INFORMATION
  Report Type: Spontaneous
  Country: DE (occurrence: DE)
  Receive Date: 20180815
  Receipt Date: 20180815
  Transmission Date: 20181010
  Serious: Yes (Hospitalization)
  Sender: FDA-Public Use
  Company Number: DE-ANIPHARMA-2018-DE-000046

PATIENT
  Age: 33 Year
  Sex: Male
  Weight: 112 kg

DRUGS (3)
  1. ADVANTAN [Concomitant]
     Active Substance: METHYLPREDNISOLONE ACEPONATE
  2. CANDESARTAN CILEXETIL. [Suspect]
     Active Substance: CANDESARTAN CILEXETIL
     Dosage: 8MG
     Route: 048
     Dates: start: 20170914
  3. HUMIRA [Suspect]
     Active Substance: ADALIMUMAB
     Dosage: EVERY 14 DAYS
     Route: 058
     Dates: start: 20150527, end: 20170607

REACTIONS (10)
  - Polyuria [Unknown]
  - Oropharyngeal pain [Unknown]
  - Glomerulonephritis [Unknown]
  - Cholelithiasis [Unknown]
  - Weight increased [Unknown]
  - Arthralgia [Unknown]
  - Haematuria [Unknown]
  - Angina pectoris [Unknown]
  - Nephritic syndrome [Recovering/Resolving]
  - Hepatic steatosis [Unknown]

NARRATIVE: CASE EVENT DATE: 20170914
